FAERS Safety Report 13786828 (Version 3)
Quarter: 2017Q4

REPORT INFORMATION
  Report Type: Report from Study
  Country: None (occurrence: US)
  Receive Date: 20170725
  Receipt Date: 20171018
  Transmission Date: 20180320
  Serious: Yes (Hospitalization, Other)
  Sender: FDA-Public Use
  Company Number: US-ABBVIE-17K-163-2016380-00

PATIENT
  Age: 71 Year
  Sex: Female

DRUGS (3)
  1. HUMIRA [Suspect]
     Active Substance: ADALIMUMAB
     Indication: PSORIASIS
     Route: 058
     Dates: start: 20161103, end: 20170518
  2. HUMIRA [Suspect]
     Active Substance: ADALIMUMAB
     Route: 058
     Dates: start: 20170817
  3. SYNTHROID [Suspect]
     Active Substance: LEVOTHYROXINE SODIUM
     Indication: HYPOTHYROIDISM
     Route: 048

REACTIONS (16)
  - Cerebral haemorrhage [Recovered/Resolved]
  - Hernia [Recovered/Resolved]
  - Stoma site pain [Recovered/Resolved]
  - Multiple fractures [Recovered/Resolved]
  - Diverticulitis [Not Recovered/Not Resolved]
  - Joint dislocation [Recovered/Resolved]
  - Diverticulum [Recovered/Resolved]
  - Anastomotic ulcer [Recovered/Resolved]
  - Confusional state [Recovering/Resolving]
  - Post procedural infection [Recovering/Resolving]
  - Abdominal pain [Recovered/Resolved]
  - Diverticulum [Recovering/Resolving]
  - Sepsis [Recovered/Resolved]
  - Dysarthria [Recovered/Resolved]
  - Pneumothorax [Recovered/Resolved]
  - Road traffic accident [Recovered/Resolved]

NARRATIVE: CASE EVENT DATE: 2000
